FAERS Safety Report 13554153 (Version 1)
Quarter: 2017Q2

REPORT INFORMATION
  Report Type: Spontaneous
  Country: US (occurrence: US)
  Receive Date: 20170517
  Receipt Date: 20170517
  Transmission Date: 20170830
  Serious: No
  Sender: FDA-Public Use
  Company Number: US-UNICHEM LABORATORIES LIMITED-UCM201701-000005

PATIENT
  Sex: Female

DRUGS (14)
  1. JANUMET [Concomitant]
     Active Substance: METFORMIN HYDROCHLORIDE\SITAGLIPTIN PHOSPHATE
  2. ASPIRIN. [Concomitant]
     Active Substance: ASPIRIN
  3. DIVALPROEX SODIUM. [Suspect]
     Active Substance: DIVALPROEX SODIUM
     Indication: HALLUCINATION, AUDITORY
  4. LOSARTAN. [Concomitant]
     Active Substance: LOSARTAN
  5. FAMODIPINE [Concomitant]
  6. PERPHENAZINE. [Concomitant]
     Active Substance: PERPHENAZINE
  7. ATORVASTATIN [Concomitant]
     Active Substance: ATORVASTATIN
  8. IBUPROFEN. [Concomitant]
     Active Substance: IBUPROFEN
     Indication: ARTHRALGIA
  9. DIVALPROEX SODIUM. [Suspect]
     Active Substance: DIVALPROEX SODIUM
     Indication: SCHIZOPHRENIA
  10. DOCUSATE SODIUM. [Concomitant]
     Active Substance: DOCUSATE SODIUM
  11. HYDROCHLOROTHIAZIDE. [Concomitant]
     Active Substance: HYDROCHLOROTHIAZIDE
  12. DIVALPROEX SODIUM. [Suspect]
     Active Substance: DIVALPROEX SODIUM
     Indication: PARANOIA
  13. ZOLPIDEM [Concomitant]
     Active Substance: ZOLPIDEM\ZOLPIDEM TARTRATE
  14. METOPROLOL. [Concomitant]
     Active Substance: METOPROLOL

REACTIONS (10)
  - Condition aggravated [Unknown]
  - Depression [Unknown]
  - Adverse drug reaction [Unknown]
  - Hyperhidrosis [Not Recovered/Not Resolved]
  - Decreased appetite [Not Recovered/Not Resolved]
  - Infection [Recovered/Resolved]
  - Insomnia [Not Recovered/Not Resolved]
  - Anxiety [Unknown]
  - Mood altered [Not Recovered/Not Resolved]
  - Treatment noncompliance [Unknown]
